FAERS Safety Report 13877588 (Version 1)
Quarter: 2017Q3

REPORT INFORMATION
  Report Type: Spontaneous
  Country: US (occurrence: US)
  Receive Date: 20170817
  Receipt Date: 20170817
  Transmission Date: 20171127
  Serious: Yes (Death, Hospitalization)
  Sender: FDA-Public Use
  Company Number: US-JNJFOC-20170723211

PATIENT
  Age: 87 Year
  Sex: Female

DRUGS (3)
  1. XARELTO [Suspect]
     Active Substance: RIVAROXABAN
     Indication: THROMBOSIS PROPHYLAXIS
     Dosage: 10 MG, 20 MG
     Route: 048
     Dates: start: 20131029, end: 20140729
  2. XARELTO [Suspect]
     Active Substance: RIVAROXABAN
     Indication: ATRIAL FIBRILLATION
     Dosage: 10 MG, 20 MG
     Route: 048
     Dates: start: 20131029, end: 20140729
  3. XARELTO [Suspect]
     Active Substance: RIVAROXABAN
     Indication: CEREBROVASCULAR ACCIDENT PROPHYLAXIS
     Dosage: 10 MG, 20 MG
     Route: 048
     Dates: start: 20131029, end: 20140729

REACTIONS (3)
  - Prescribed underdose [Unknown]
  - Aortic aneurysm rupture [Fatal]
  - Off label use [Unknown]

NARRATIVE: CASE EVENT DATE: 20131029
